FAERS Safety Report 4608288-9 (Version None)
Quarter: 2005Q2

REPORT INFORMATION
  Report Type: 
  Country: None (occurrence: None)
  Receive Date: 20050303
  Receipt Date: 20041207
  Transmission Date: 20051028
  Serious: No
  Sender: FDA-Public Use
  Company Number: 2004BI001435

PATIENT
  Age: 41 Year
  Sex: Female
  Weight: 51.7101 kg

DRUGS (1)
  1. AMEVIVE [Suspect]
     Indication: PSORIASIS
     Dosage: 15 MG;QM;IM
     Route: 030
     Dates: start: 20040109, end: 20040326

REACTIONS (1)
  - PSORIASIS [None]
